FAERS Safety Report 14626812 (Version 5)
Quarter: 2018Q2

REPORT INFORMATION
  Report Type: Other
  Country: IT (occurrence: IT)
  Receive Date: 20180312
  Receipt Date: 20180523
  Transmission Date: 20180711
  Serious: Yes (Other)
  Sender: FDA-Public Use
  Company Number: IT-RARE DISEASE THERAPEUTICS, INC.-2043531

PATIENT
  Age: 19 Year
  Sex: Female

DRUGS (31)
  1. CYTARABINE. [Suspect]
     Active Substance: CYTARABINE
     Route: 042
  2. FILGRASTIM [Suspect]
     Active Substance: FILGRASTIM
     Route: 058
  3. THIOTEPA. [Suspect]
     Active Substance: THIOTEPA
     Route: 042
     Dates: start: 20150904
  4. FOLINIC ACID [Suspect]
     Active Substance: LEUCOVORIN
     Route: 042
  5. PREDNISONE. [Suspect]
     Active Substance: PREDNISONE
     Route: 048
  6. FILGRASTIM [Suspect]
     Active Substance: FILGRASTIM
     Route: 058
  7. PURIXAN [Suspect]
     Active Substance: MERCAPTOPURINE
     Indication: ACUTE LYMPHOCYTIC LEUKAEMIA
     Route: 048
  8. DEXAMETHASONE SODIUM PHOSPHATE. [Suspect]
     Active Substance: DEXAMETHASONE SODIUM PHOSPHATE
     Route: 042
  9. LENOGRASTIM [Suspect]
     Active Substance: LENOGRASTIM
     Route: 065
  10. CYTARABINE. [Suspect]
     Active Substance: CYTARABINE
     Route: 058
  11. LENOGRASTIM [Suspect]
     Active Substance: LENOGRASTIM
     Route: 058
  12. LENOGRASTIM [Suspect]
     Active Substance: LENOGRASTIM
     Route: 058
  13. IDARUBICIN HYDROCHLORIDE. [Suspect]
     Active Substance: IDARUBICIN HYDROCHLORIDE
     Route: 042
  14. FILGRASTIM [Suspect]
     Active Substance: FILGRASTIM
     Route: 058
  15. CYCLOPHOSPHAMIDE. [Suspect]
     Active Substance: CYCLOPHOSPHAMIDE
     Route: 042
  16. CYTARABINE. [Suspect]
     Active Substance: CYTARABINE
     Route: 058
  17. BLINCYTO [Suspect]
     Active Substance: BLINATUMOMAB
     Route: 042
     Dates: start: 20161220
  18. VINCRISTINE SULFATE. [Suspect]
     Active Substance: VINCRISTINE SULFATE
     Route: 042
  19. CYTARABINE. [Suspect]
     Active Substance: CYTARABINE
     Route: 042
  20. IDARUBICIN HYDROCHLORIDE. [Suspect]
     Active Substance: IDARUBICIN HYDROCHLORIDE
     Route: 042
  21. DEXAMETHASONE SODIUM PHOSPHATE. [Suspect]
     Active Substance: DEXAMETHASONE SODIUM PHOSPHATE
     Route: 048
  22. DEXAMETHASONE SODIUM PHOSPHATE. [Suspect]
     Active Substance: DEXAMETHASONE SODIUM PHOSPHATE
     Route: 042
  23. LENOGRASTIM [Suspect]
     Active Substance: LENOGRASTIM
     Route: 058
  24. METHOTREXATE. [Suspect]
     Active Substance: METHOTREXATE
     Route: 042
  25. BUSULFAN. [Suspect]
     Active Substance: BUSULFAN
     Route: 042
     Dates: start: 20150904
  26. LENOGRASTIM [Suspect]
     Active Substance: LENOGRASTIM
     Route: 065
  27. FLUDARABINE [Suspect]
     Active Substance: FLUDARABINE PHOSPHATE
     Route: 065
     Dates: start: 20150904
  28. FILGRASTIM [Suspect]
     Active Substance: FILGRASTIM
     Route: 058
  29. FILGRASTIM [Suspect]
     Active Substance: FILGRASTIM
     Route: 058
  30. CYCLOPHOSPHAMIDE. [Suspect]
     Active Substance: CYCLOPHOSPHAMIDE
     Route: 042
  31. INOTUZUMAB OZOGAMICIN [Concomitant]
     Active Substance: INOTUZUMAB OZOGAMICIN
     Route: 065

REACTIONS (4)
  - Neoplasm recurrence [Unknown]
  - Neurotoxicity [Recovered/Resolved]
  - Seizure [Recovered/Resolved]
  - Acute lymphocytic leukaemia recurrent [Unknown]
